FAERS Safety Report 20978235 (Version 1)
Quarter: 2022Q2

REPORT INFORMATION
  Report Type: Spontaneous
  Country: US (occurrence: US)
  Receive Date: 20220618
  Receipt Date: 20220618
  Transmission Date: 20220721
  Serious: No
  Sender: FDA-Public Use
  Company Number: US-SA-SAC20220614000512

PATIENT
  Age: 22 Year
  Sex: Female

DRUGS (14)
  1. DUPIXENT [Suspect]
     Active Substance: DUPILUMAB
     Indication: Dermatitis atopic
     Dosage: 300 MG, QOW
     Route: 058
     Dates: start: 20220416
  2. CRANBERRY [Concomitant]
     Active Substance: CRANBERRY
  3. CLOBETASOL [Concomitant]
     Active Substance: CLOBETASOL
  4. FLUOCINONIDE [Concomitant]
     Active Substance: FLUOCINONIDE
  5. PROTOPIC [Concomitant]
     Active Substance: TACROLIMUS
  6. SYMBICORT [Concomitant]
     Active Substance: BUDESONIDE\FORMOTEROL FUMARATE DIHYDRATE
  7. ALBUTEROL SULFATE [Concomitant]
     Active Substance: ALBUTEROL SULFATE
  8. ASPIRIN [Concomitant]
     Active Substance: ASPIRIN
  9. CELEBREX [Concomitant]
     Active Substance: CELECOXIB
  10. OXYCODONE HYDROCHLORIDE [Concomitant]
     Active Substance: OXYCODONE HYDROCHLORIDE
  11. TACROLIMUS [Concomitant]
     Active Substance: TACROLIMUS
  12. VITAMIN D3 [Concomitant]
     Active Substance: CHOLECALCIFEROL
  13. IRON [Concomitant]
     Active Substance: IRON
  14. CALCIUM CITRATE [Concomitant]
     Active Substance: CALCIUM CITRATE

REACTIONS (6)
  - Injection site urticaria [Not Recovered/Not Resolved]
  - Dry skin [Recovered/Resolved]
  - Pruritus [Not Recovered/Not Resolved]
  - Erythema [Recovered/Resolved]
  - Rash [Unknown]
  - Product dose omission issue [Unknown]

NARRATIVE: CASE EVENT DATE: 20220101
